FAERS Safety Report 14317154 (Version 1)
Quarter: 2017Q4

REPORT INFORMATION
  Report Type: Spontaneous
  Country: US (occurrence: US)
  Receive Date: 20171222
  Receipt Date: 20171222
  Transmission Date: 20180321
  Serious: No
  Sender: FDA-Public Use
  Company Number: US-009507513-1712USA011039

PATIENT
  Age: 25 Year
  Sex: Female
  Weight: 66.67 kg

DRUGS (1)
  1. NEXPLANON [Suspect]
     Active Substance: ETONOGESTREL
     Dosage: 1 DF, UNK
     Route: 059
     Dates: start: 20140528, end: 20171218

REACTIONS (12)
  - Nerve compression [Unknown]
  - Implant site reaction [Unknown]
  - Mood swings [Unknown]
  - Drug administered at inappropriate site [Recovered/Resolved]
  - Implant site bruising [Unknown]
  - Device difficult to use [Recovered/Resolved]
  - Hypokinesia [Unknown]
  - Hypoaesthesia [Unknown]
  - Complication associated with device [Recovered/Resolved]
  - Depression [Unknown]
  - Incorrect drug administration duration [Recovered/Resolved]
  - Weight increased [Unknown]

NARRATIVE: CASE EVENT DATE: 2014
